FAERS Safety Report 8138687-2 (Version None)
Quarter: 2012Q1

REPORT INFORMATION
  Report Type: 
  Country: None (occurrence: None)
  Receive Date: 20120213
  Receipt Date: 20120127
  Transmission Date: 20120608
  Serious: Yes (Hospitalization)
  Sender: FDA-Public Use
  Company Number: 216236

PATIENT
  Age: 65 Year
  Sex: Male
  Weight: 59.6 kg

DRUGS (1)
  1. INNOHEP [Suspect]
     Indication: EMBOLISM VENOUS
     Dosage: 11000 IU (11000 IU, 1 IN 1 D, SUBCUTANEOUS
     Route: 058
     Dates: start: 20111006

REACTIONS (11)
  - WHITE BLOOD CELL COUNT DECREASED [None]
  - SEPSIS [None]
  - BODY TEMPERATURE DECREASED [None]
  - HYPOVOLAEMIC SHOCK [None]
  - FEBRILE NEUTROPENIA [None]
  - PRODUCTIVE COUGH [None]
  - HYPERKALAEMIA [None]
  - SKIN TURGOR DECREASED [None]
  - TONGUE DRY [None]
  - DEHYDRATION [None]
  - PNEUMOCYSTIS JIROVECI PNEUMONIA [None]
